FAERS Safety Report 13489545 (Version 1)
Quarter: 2017Q2

REPORT INFORMATION
  Report Type: Spontaneous
  Country: US (occurrence: US)
  Receive Date: 20170426
  Receipt Date: 20170426
  Transmission Date: 20170830
  Serious: No
  Sender: FDA-Public Use
  Company Number: US-ALKERMES INC.-ALK-2017-001192

PATIENT
  Age: 66 Year
  Sex: Male
  Weight: 79.82 kg

DRUGS (2)
  1. VIVITROL [Suspect]
     Active Substance: NALTREXONE
     Indication: ALCOHOLISM
     Dosage: 380 MG, QMO
     Dates: start: 20170321
  2. NALTREXONE [Concomitant]
     Active Substance: NALTREXONE
     Indication: PRODUCT USED FOR UNKNOWN INDICATION
     Dosage: UNK
     Route: 048

REACTIONS (6)
  - Cough [Unknown]
  - Dyspnoea [Unknown]
  - Asthma [Unknown]
  - Orthopnoea [Unknown]
  - Upper respiratory tract infection [Unknown]
  - Chest discomfort [Unknown]

NARRATIVE: CASE EVENT DATE: 201703
